FAERS Safety Report 13336774 (Version 1)
Quarter: 2017Q1

REPORT INFORMATION
  Report Type: Spontaneous
  Country: US (occurrence: US)
  Receive Date: 20170315
  Receipt Date: 20170315
  Transmission Date: 20170428
  Serious: No
  Sender: FDA-Public Use
  Company Number: US-SUN PHARMACEUTICAL INDUSTRIES LTD-2016US-125364

PATIENT
  Age: 46 Year
  Sex: Male

DRUGS (1)
  1. CLINDAMYCIN. [Suspect]
     Active Substance: CLINDAMYCIN
     Indication: PROPHYLAXIS
     Dosage: 4 DF, SINGLE
     Route: 048
     Dates: start: 201609, end: 201609

REACTIONS (5)
  - Product substitution issue [Unknown]
  - Dyspepsia [Unknown]
  - Drug prescribing error [Unknown]
  - Diarrhoea [Unknown]
  - Abdominal discomfort [Unknown]

NARRATIVE: CASE EVENT DATE: 201609
